FAERS Safety Report 4492838-X (Version None)
Quarter: 2004Q4

REPORT INFORMATION
  Report Type: 
  Country: None (occurrence: None)
  Receive Date: 20041102
  Receipt Date: 20041102
  Transmission Date: 20050328
  Serious: Yes (Disabling)
  Sender: FDA-Public Use
  Company Number: None

PATIENT
  Age: 52 Year
  Sex: Male
  Weight: 83.0083 kg

DRUGS (2)
  1. LIPITOR [Suspect]
     Indication: BLOOD CHOLESTEROL INCREASED
     Dosage: 1 DAILY
     Dates: start: 20030908, end: 20040404
  2. ZETIA [Suspect]
     Dosage: 1 DAILY
     Dates: start: 20040803, end: 20040906

REACTIONS (4)
  - ACTIVITIES OF DAILY LIVING IMPAIRED [None]
  - MUSCLE DISORDER [None]
  - PAIN [None]
  - PARAESTHESIA [None]
